FAERS Safety Report 5140037-0 (Version None)
Quarter: 2006Q4

REPORT INFORMATION
  Report Type: 
  Country: None (occurrence: None)
  Receive Date: 20061024
  Receipt Date: 20061003
  Transmission Date: 20070319
  Serious: Yes (Hospitalization, Other)
  Sender: FDA-Public Use
  Company Number: US200605000138

PATIENT
  Age: 39 Year
  Sex: Male
  Weight: 78 kg

DRUGS (3)
  1. ZYPREXA [Suspect]
     Dates: start: 19990901, end: 20050901
  2. PREDNISONE TAB [Concomitant]
  3. COREG [Concomitant]

REACTIONS (7)
  - CONVULSION [None]
  - DIABETES MELLITUS [None]
  - DIABETIC KETOACIDOSIS [None]
  - GLUCOSE TOLERANCE IMPAIRED [None]
  - HYPERINSULINISM [None]
  - HYPOGLYCAEMIA [None]
  - MYOCARDIAL ISCHAEMIA [None]
